FAERS Safety Report 10206624 (Version 1)
Quarter: 2014Q2

REPORT INFORMATION
  Report Type: Spontaneous
  Country: FR (occurrence: FR)
  Receive Date: 20140530
  Receipt Date: 20140530
  Transmission Date: 20141212
  Serious: Yes (Hospitalization)
  Sender: FDA-Public Use
  Company Number: FR-PFIZER INC-2014148054

PATIENT
  Age: 83 Year
  Sex: Male

DRUGS (9)
  1. CORDARONE [Suspect]
     Indication: MYOCARDIAL INFARCTION
     Dosage: UNK
     Route: 048
     Dates: start: 201301, end: 201401
  2. ZYLORIC [Suspect]
     Indication: GOUT
     Dosage: UNK
     Route: 048
     Dates: end: 20140203
  3. PLAVIX [Concomitant]
     Dosage: UNK
  4. KARDEGIC [Concomitant]
     Dosage: UNK
  5. BURINEX [Concomitant]
     Dosage: UNK
  6. PRAVASTATIN [Concomitant]
     Dosage: UNK
  7. ESIDREX [Concomitant]
     Dosage: UNK
  8. DOLIPRANE [Concomitant]
     Dosage: UNK
  9. FORLAX [Concomitant]
     Dosage: UNK

REACTIONS (1)
  - Prurigo [Recovered/Resolved]
